FAERS Safety Report 5911577-9 (Version None)
Quarter: 2008Q4

REPORT INFORMATION
  Report Type: 
  Country: None (occurrence: None)
  Receive Date: 20081003
  Receipt Date: 20080924
  Transmission Date: 20090506
  Serious: Yes (Other)
  Sender: FDA-Public Use
  Company Number: 08H-028-0314966-00

PATIENT
  Age: 45 Year
  Sex: Male

DRUGS (1)
  1. LIDOCAINE HCL [Suspect]
     Indication: VENTRICULAR TACHYCARDIA
     Dosage: 70 MG,; 1 MG/MIN, CONTINUOUS INFUSION

REACTIONS (2)
  - BRUGADA SYNDROME [None]
  - GENE MUTATION [None]
